FAERS Safety Report 10362269 (Version 1)
Quarter: 2014Q3

REPORT INFORMATION
  Report Type: Spontaneous
  Country: US (occurrence: None)
  Receive Date: 20140804
  Receipt Date: 20140804
  Transmission Date: 20150330
  Serious: Yes (Death)
  Sender: FDA-Public Use
  Company Number: None

PATIENT
  Age: 79 Year
  Sex: Male

DRUGS (11)
  1. MYCOSTATIN [Concomitant]
     Active Substance: NYSTATIN
  2. FLOMAX [Concomitant]
     Active Substance: TAMSULOSIN HYDROCHLORIDE
  3. BYSTOLIC AVODART [Concomitant]
  4. VANCOMYCIN [Concomitant]
     Active Substance: VANCOMYCIN
  5. NAMENDA [Concomitant]
     Active Substance: MEMANTINE HYDROCHLORIDE
  6. IPILIMUMAB [Suspect]
     Active Substance: IPILIMUMAB
     Indication: MALIGNANT MELANOMA
     Route: 042
  7. PROTONIX [Concomitant]
     Active Substance: PANTOPRAZOLE SODIUM
  8. YERVOY [Concomitant]
     Active Substance: IPILIMUMAB
  9. LOVENOX [Concomitant]
     Active Substance: ENOXAPARIN SODIUM
  10. ZOFRAN [Concomitant]
     Active Substance: ONDANSETRON HYDROCHLORIDE
  11. VICTOZA [Concomitant]
     Active Substance: LIRAGLUTIDE

REACTIONS (8)
  - Cellulitis [None]
  - Renal impairment [None]
  - Ascites [None]
  - Oliguria [None]
  - Dyspnoea [None]
  - Malignant melanoma [None]
  - Malignant neoplasm progression [None]
  - Hypotension [None]

NARRATIVE: CASE EVENT DATE: 20140718
